FAERS Safety Report 10751879 (Version 2)
Quarter: 2015Q1

REPORT INFORMATION
  Report Type: Report from Study
  Country: FR (occurrence: FR)
  Receive Date: 20150130
  Receipt Date: 20150225
  Transmission Date: 20150721
  Serious: Yes (Other)
  Sender: FDA-Public Use
  Company Number: FR-ALEXION PHARMACEUTICALS INC-A201500226

PATIENT

DRUGS (1)
  1. SOLIRIS [Suspect]
     Active Substance: ECULIZUMAB
     Indication: PRODUCT USED FOR UNKNOWN INDICATION
     Dosage: 900 MG, Q2W
     Route: 042
     Dates: start: 201111, end: 201305

REACTIONS (5)
  - Haemoglobin abnormal [Unknown]
  - Musculoskeletal stiffness [Unknown]
  - Headache [Unknown]
  - Nasopharyngitis [Unknown]
  - Fatigue [Unknown]
